FAERS Safety Report 9949241 (Version 2)
Quarter: 2014Q1

REPORT INFORMATION
  Report Type: Report from Study
  Country: NL (occurrence: NL)
  Receive Date: 20140304
  Receipt Date: 20140324
  Transmission Date: 20141002
  Serious: Yes (Hospitalization, Other)
  Sender: FDA-Public Use
  Company Number: NL-JNJFOC-20140217498

PATIENT
  Age: 67 Year
  Sex: Male
  Weight: 78 kg

DRUGS (8)
  1. RIVAROXABAN [Suspect]
     Indication: CEREBROVASCULAR ACCIDENT PROPHYLAXIS
     Route: 048
     Dates: start: 20130817
  2. RIVAROXABAN [Suspect]
     Indication: ATRIAL FIBRILLATION
     Route: 048
     Dates: start: 20130817
  3. CRESTOR [Concomitant]
     Route: 065
     Dates: start: 20090124
  4. TAMBOCOR [Concomitant]
     Dosage: ONCE 1 DAY ONE OFF
     Route: 065
     Dates: start: 20140219, end: 20140219
  5. EPIPEN [Concomitant]
     Route: 065
  6. SOTALOL [Concomitant]
     Route: 065
     Dates: start: 20131117
  7. ACENOCOUMAROL [Concomitant]
     Route: 065
     Dates: start: 20130612, end: 20130812
  8. METOPROLOL [Concomitant]
     Route: 065
     Dates: start: 20131117

REACTIONS (2)
  - Atrial fibrillation [Recovered/Resolved]
  - Atrial fibrillation [Recovered/Resolved]
